FAERS Safety Report 12812347 (Version 1)
Quarter: 2016Q4

REPORT INFORMATION
  Report Type: Report from Study
  Country: US (occurrence: US)
  Receive Date: 20161005
  Receipt Date: 20161005
  Transmission Date: 20170207
  Serious: Yes (Other)
  Sender: FDA-Public Use
  Company Number: US-AMGEN-USASP2016111179

PATIENT
  Age: 83 Year
  Sex: Female

DRUGS (1)
  1. PROLIA [Suspect]
     Active Substance: DENOSUMAB
     Indication: OSTEOPOROSIS POSTMENOPAUSAL
     Dosage: UNK, Q6MO
     Route: 065
     Dates: start: 201503

REACTIONS (10)
  - Insomnia [Recovering/Resolving]
  - Asthenia [Recovering/Resolving]
  - Rash pruritic [Recovering/Resolving]
  - Papule [Recovering/Resolving]
  - Adverse reaction [Unknown]
  - Rash papular [Not Recovered/Not Resolved]
  - Pruritus [Recovering/Resolving]
  - Feeling abnormal [Recovering/Resolving]
  - Drug effect incomplete [Unknown]
  - Rash [Unknown]

NARRATIVE: CASE EVENT DATE: 201512
